FAERS Safety Report 10232319 (Version 1)
Quarter: 2014Q2

REPORT INFORMATION
  Report Type: Spontaneous
  Country: US (occurrence: None)
  Receive Date: 20140610
  Receipt Date: 20140610
  Transmission Date: 20141212
  Serious: Yes (Other)
  Sender: FDA-Public Use
  Company Number: None

PATIENT
  Age: 13 Year
  Sex: Male

DRUGS (1)
  1. LASTACAFT [Suspect]
     Indication: EYE IRRITATION
     Dosage: 1 DROP EACH EYE
     Route: 047

REACTIONS (3)
  - Eye swelling [None]
  - Ocular hyperaemia [None]
  - Eye irritation [None]
